FAERS Safety Report 26148438 (Version 3)
Quarter: 2025Q4

REPORT INFORMATION
  Report Type: Spontaneous
  Country: EU (occurrence: EU)
  Receive Date: 20251212
  Receipt Date: 20251216
  Transmission Date: 20260117
  Serious: Yes (Other)
  Sender: SANOFI AVENTIS
  Company Number: EU-SA-2025SA366768

PATIENT
  Age: 37 Year
  Sex: Female
  Weight: 79 kg

DRUGS (8)
  1. DUPIXENT [Suspect]
     Active Substance: DUPILUMAB
     Indication: Asthma
     Dosage: 600 MG, 1X
     Dates: start: 20250507, end: 20250507
  2. DUPIXENT [Suspect]
     Active Substance: DUPILUMAB
     Indication: Chronic rhinosinusitis with nasal polyps
     Dosage: 300 MG, QOW
     Dates: start: 2025
  3. METHYLPREDNISOLONE [Concomitant]
     Active Substance: METHYLPREDNISOLONE
     Dosage: 2 MG
  4. MONTELUKAST [Concomitant]
     Active Substance: MONTELUKAST
     Dosage: 10 MG
  5. DEXLANSOPRAZOLE [Concomitant]
     Active Substance: DEXLANSOPRAZOLE
     Dosage: 30 MG
  6. Glycopyrronium;Indacaterol;Mometasone [Concomitant]
  7. BECLOMETHASONE DIPROPIONATE\FORMOTEROL [Concomitant]
     Active Substance: BECLOMETHASONE DIPROPIONATE\FORMOTEROL
  8. EBASTINE [Concomitant]
     Active Substance: EBASTINE

REACTIONS (4)
  - Chronic myeloid leukaemia [Unknown]
  - Leukocytosis [Unknown]
  - Granulocyte count increased [Unknown]
  - Eosinophil count increased [Unknown]

NARRATIVE: CASE EVENT DATE: 20251022
